FAERS Safety Report 25849213 (Version 1)
Quarter: 2025Q3

REPORT INFORMATION
  Report Type: Spontaneous
  Country: US (occurrence: US)
  Receive Date: 20250925
  Receipt Date: 20250925
  Transmission Date: 20251020
  Serious: No
  Sender: BIOGEN
  Company Number: US-BIOGEN-2025BI01324161

PATIENT
  Sex: Male

DRUGS (1)
  1. SKYCLARYS [Suspect]
     Active Substance: OMAVELOXOLONE
     Indication: Friedreich^s ataxia
     Route: 050
     Dates: start: 20250905

REACTIONS (3)
  - Frequent bowel movements [Unknown]
  - Neuropathy peripheral [Unknown]
  - Paraesthesia [Unknown]
